FAERS Safety Report 25263714 (Version 2)
Quarter: 2025Q2

REPORT INFORMATION
  Report Type: Spontaneous
  Country: FR (occurrence: FR)
  Receive Date: 20250502
  Receipt Date: 20250520
  Transmission Date: 20250717
  Serious: Yes (Other)
  Sender: CHEPLAPHARM
  Company Number: None

PATIENT
  Age: 37 Year
  Sex: Female
  Weight: 80 kg

DRUGS (6)
  1. QUETIAPINE [Suspect]
     Active Substance: QUETIAPINE
     Indication: Bipolar disorder
     Dosage: EXTENDED-RELEASE TABLET?DAILY DOSE: 250 MILLIGRAM
     Route: 048
     Dates: start: 20250314, end: 20250323
  2. TROPATEPINE HYDROCHLORIDE [Suspect]
     Active Substance: TROPATEPINE HYDROCHLORIDE
     Indication: Product used for unknown indication
     Dosage: 1 TABLET OF 10 MG?DAILY DOSE: 10 MILLIGRAM
     Route: 048
     Dates: start: 20250320, end: 20250321
  3. TROPATEPINE HYDROCHLORIDE [Suspect]
     Active Substance: TROPATEPINE HYDROCHLORIDE
     Indication: Product used for unknown indication
     Dosage: 2 TABLETS OF 10 MG?DAILY DOSE: 20 MILLIGRAM
     Route: 048
     Dates: start: 20250321, end: 20250322
  4. TROPATEPINE HYDROCHLORIDE [Suspect]
     Active Substance: TROPATEPINE HYDROCHLORIDE
     Indication: Product used for unknown indication
     Dosage: 3 TABLETS OF 10 MG?DAILY DOSE: 30 MILLIGRAM
     Route: 048
     Dates: start: 20250322, end: 20250323
  5. TERALITHE [Suspect]
     Active Substance: LITHIUM CARBONATE
     Indication: Product used for unknown indication
     Dosage: SUSTAINED-RELEASE SCORED TABLET?DAILY DOSE: 400 MILLIGRAM
     Route: 048
  6. VALIUM [Concomitant]
     Active Substance: DIAZEPAM

REACTIONS (7)
  - Intestinal obstruction [Not Recovered/Not Resolved]
  - Faecal vomiting [Recovered/Resolved]
  - Hypothyroidism [Not Recovered/Not Resolved]
  - Confusional state [Not Recovered/Not Resolved]
  - Haemangioma of liver [Unknown]
  - Fatigue [Unknown]
  - Chills [Unknown]

NARRATIVE: CASE EVENT DATE: 20250321
